FAERS Safety Report 7945531-2 (Version None)
Quarter: 2011Q4

REPORT INFORMATION
  Report Type: 
  Country: None (occurrence: None)
  Receive Date: 20111121
  Receipt Date: 20111116
  Transmission Date: 20120403
  Serious: Yes (Life-Threatening)
  Sender: FDA-Public Use
  Company Number: 2011SP047782

PATIENT
  Age: 76 Year
  Sex: Male
  Weight: 80 kg

DRUGS (7)
  1. ROCURONIUM BROMIDE [Concomitant]
  2. FENTANYL [Concomitant]
  3. SUGAMMADEX SODIUM [Suspect]
     Indication: NEUROMUSCULAR BLOCKADE REVERSAL
     Dosage: 200 MG;IV, 100 MG;IV
     Route: 042
     Dates: start: 20111004, end: 20111004
  4. SUGAMMADEX SODIUM [Suspect]
     Indication: NEUROMUSCULAR BLOCKADE REVERSAL
     Dosage: 200 MG;IV, 100 MG;IV
     Route: 042
     Dates: start: 20111004, end: 20111004
  5. PROPOFOL [Concomitant]
  6. ULTIVA [Concomitant]
  7. SEVOFLURANE [Concomitant]

REACTIONS (5)
  - RESPIRATORY ARREST [None]
  - PULMONARY OEDEMA [None]
  - INCREASED UPPER AIRWAY SECRETION [None]
  - APPARENT LIFE THREATENING EVENT [None]
  - ARTERIOSCLEROSIS OBLITERANS [None]
